FAERS Safety Report 10684483 (Version 1)
Quarter: 2014Q4

REPORT INFORMATION
  Report Type: Report from Study
  Country: US (occurrence: US)
  Receive Date: 20141231
  Receipt Date: 20141231
  Transmission Date: 20150529
  Serious: Yes (Hospitalization)
  Sender: FDA-Public Use
  Company Number: PHEH2014US025927

PATIENT
  Age: 24 Year
  Sex: Male
  Weight: 65.76 kg

DRUGS (2)
  1. TOBI PODHALER [Suspect]
     Active Substance: TOBRAMYCIN
     Indication: CYSTIC FIBROSIS
     Dosage: 112 MG, BID
     Route: 055
  2. TOBI PODHALER [Suspect]
     Active Substance: TOBRAMYCIN
     Indication: LUNG DISORDER

REACTIONS (4)
  - Condition aggravated [Unknown]
  - Choking [Unknown]
  - Cystic fibrosis [Unknown]
  - Pneumothorax [Unknown]

NARRATIVE: CASE EVENT DATE: 20141101
